FAERS Safety Report 5899735-3 (Version None)
Quarter: 2008Q3

REPORT INFORMATION
  Report Type: 
  Country: None (occurrence: None)
  Receive Date: 20080926
  Receipt Date: 20080922
  Transmission Date: 20090109
  Serious: Yes (Congenital Anomaly)
  Sender: FDA-Public Use
  Company Number: FR-ABBOTT-08P-056-0477441-00

PATIENT
  Sex: Male
  Weight: 2.7 kg

DRUGS (1)
  1. DEPAKENE [Suspect]
     Indication: DRUG EXPOSURE DURING PREGNANCY
     Route: 064

REACTIONS (7)
  - ARACHNODACTYLY [None]
  - CLINODACTYLY [None]
  - DRUG EXPOSURE DURING PREGNANCY [None]
  - DYSMORPHISM [None]
  - HYPOTONIA NEONATAL [None]
  - POOR SUCKING REFLEX [None]
  - PSYCHOMOTOR RETARDATION [None]
